FAERS Safety Report 8876793 (Version 5)
Quarter: 2013Q1

REPORT INFORMATION
  Report Type: Spontaneous
  Country: JP (occurrence: JP)
  Receive Date: 20121029
  Receipt Date: 20130124
  Transmission Date: 20140127
  Serious: Yes (Hospitalization, Other)
  Sender: FDA-Public Use
  Company Number: JP-B.I. PHARMACEUTICALS,INC./RIDGEFIELD-2012-BP-26509NB

PATIENT
  Age: 75 Year
  Sex: Female
  Weight: 48.5 kg

DRUGS (16)
  1. TRAZENTA [Suspect]
     Indication: DIABETES MELLITUS
     Dosage: 5 MG
     Route: 048
     Dates: start: 20120807, end: 20121008
  2. MAIBASTAN [Concomitant]
     Indication: HYPERLIPIDAEMIA
     Dosage: 10 MG
     Route: 048
  3. TOWARAT-CR [Concomitant]
     Indication: HYPERTENSION
     Dosage: 40 MG
     Route: 048
  4. DIOVAN [Concomitant]
     Indication: HYPERTENSION
     Dosage: 80 MG
     Route: 048
  5. AMLODIPINE [Concomitant]
     Indication: HYPERTENSION
     Dosage: 10 MG
     Route: 048
  6. THYRADIN S [Concomitant]
     Indication: HYPOTHYROIDISM
     Dosage: 50 MG
     Route: 048
  7. CALTAN [Concomitant]
     Indication: HYPERPHOSPHATAEMIA
     Dosage: 1500 MG
     Route: 048
  8. KALIMATE [Concomitant]
     Indication: HYPERKALAEMIA
     Dosage: 16.2 G
     Route: 048
  9. SENNOSIDE [Concomitant]
     Indication: CONSTIPATION
     Dosage: 24 MG
     Route: 048
  10. ZESTROMIN [Concomitant]
     Indication: INSOMNIA
     Dosage: 0.25 MG
     Route: 048
  11. LASIX [Concomitant]
     Indication: CARDIAC FAILURE
     Dosage: 20 MG
     Route: 048
  12. LASIX [Concomitant]
     Indication: RENAL FAILURE
  13. LAXOBERON [Concomitant]
     Indication: CONSTIPATION
     Route: 048
  14. RESTAMIN CORTISONE [Concomitant]
     Indication: PRURITUS GENERALISED
     Route: 062
  15. EPOGIN [Concomitant]
     Indication: NEPHROGENIC ANAEMIA
     Route: 042
     Dates: end: 20120831
  16. NESP [Concomitant]
     Indication: NEPHROGENIC ANAEMIA
     Route: 042
     Dates: start: 20120903

REACTIONS (1)
  - Pancreatitis [Recovered/Resolved]
